FAERS Safety Report 6263577-X (Version None)
Quarter: 2009Q3

REPORT INFORMATION
  Report Type: 
  Country: None (occurrence: None)
  Receive Date: 20090710
  Receipt Date: 20090520
  Transmission Date: 20100115
  Serious: No
  Sender: FDA-Public Use
  Company Number: A0782996A

PATIENT
  Age: 62 Year
  Sex: Female

DRUGS (8)
  1. TYKERB [Suspect]
     Indication: BREAST CANCER
     Dosage: 1000MG PER DAY
     Route: 048
     Dates: start: 20090402
  2. XELODA [Concomitant]
  3. CARVEDILOL [Concomitant]
  4. LISINOPRIL [Concomitant]
  5. LOVASTATIN [Concomitant]
  6. MULTI-VITAMIN [Concomitant]
  7. PYRIDOXINE HCL [Concomitant]
  8. CITRACAL [Concomitant]

REACTIONS (2)
  - DRY SKIN [None]
  - SKIN DISCOLOURATION [None]
